FAERS Safety Report 24824852 (Version 2)
Quarter: 2025Q1

REPORT INFORMATION
  Report Type: Spontaneous
  Country: PT (occurrence: PT)
  Receive Date: 20250109
  Receipt Date: 20250124
  Transmission Date: 20250409
  Serious: Yes (Hospitalization)
  Sender: TEVA
  Company Number: PT-TEVA-VS-3282573

PATIENT
  Age: 71 Year
  Sex: Female

DRUGS (3)
  1. INDAPAMIDE [Suspect]
     Active Substance: INDAPAMIDE
     Indication: Essential hypertension
     Route: 065
  2. PERINDOPRIL [Concomitant]
     Active Substance: PERINDOPRIL
     Indication: Essential hypertension
  3. PAROXETINE [Concomitant]
     Active Substance: PAROXETINE
     Indication: Depression

REACTIONS (4)
  - Hyponatraemia [Recovered/Resolved]
  - Dysgeusia [Recovered/Resolved]
  - Hypergeusia [Recovered/Resolved]
  - Hypokalaemia [Unknown]
